FAERS Safety Report 17129431 (Version 4)
Quarter: 2020Q1

REPORT INFORMATION
  Report Type: Spontaneous
  Country: US (occurrence: US)
  Receive Date: 20191209
  Receipt Date: 20200224
  Transmission Date: 20200409
  Serious: Yes (Other)
  Sender: FDA-Public Use
  Company Number: US-PFIZER INC-2019529597

PATIENT
  Age: 77 Year
  Sex: Male
  Weight: 90.24 kg

DRUGS (6)
  1. ACETAMINOPHEN. [Concomitant]
     Active Substance: ACETAMINOPHEN
     Dosage: UNK
     Dates: start: 1990
  2. CEREFOLIN NAC [Concomitant]
     Dosage: UNK
     Dates: start: 2015
  3. LYRICA CR [Suspect]
     Active Substance: PREGABALIN
     Dosage: 150 MG, 3X/DAY(IN THE MORNING, AROUND 5 O^CLOCK AND WHEN HE GOES TO BED.)
  4. CRESTOR [Concomitant]
     Active Substance: ROSUVASTATIN CALCIUM
     Dosage: UNK
     Dates: start: 2010
  5. COUMADIN [Concomitant]
     Active Substance: WARFARIN SODIUM
     Dosage: UNK
     Dates: start: 2004
  6. LYRICA CR [Suspect]
     Active Substance: PREGABALIN
     Dosage: 165 MG, 3X/DAY
     Dates: start: 20181015, end: 20181017

REACTIONS (8)
  - Memory impairment [Unknown]
  - Dizziness [Unknown]
  - Therapeutic product effect decreased [Recovered/Resolved]
  - Circumstance or information capable of leading to medication error [Unknown]
  - Dementia [Unknown]
  - Drug ineffective [Unknown]
  - Pain in extremity [Unknown]
  - Back pain [Unknown]

NARRATIVE: CASE EVENT DATE: 20181015
